APPROVED DRUG PRODUCT: TRIENTINE HYDROCHLORIDE
Active Ingredient: TRIENTINE HYDROCHLORIDE
Strength: 250MG
Dosage Form/Route: CAPSULE;ORAL
Application: A210619 | Product #001
Applicant: AMNEAL PHARMACEUTICALS LLC
Approved: Feb 8, 2019 | RLD: No | RS: No | Type: DISCN